FAERS Safety Report 22218372 (Version 2)
Quarter: 2023Q2

REPORT INFORMATION
  Report Type: Spontaneous
  Country: AE (occurrence: None)
  Receive Date: 20230417
  Receipt Date: 20230421
  Transmission Date: 20230721
  Serious: Yes (Hospitalization, Other)
  Sender: FDA-Public Use
  Company Number: 2023A086959

PATIENT
  Age: 73 Year
  Sex: Male
  Weight: 113 kg

DRUGS (3)
  1. DAPAGLIFLOZIN [Suspect]
     Active Substance: DAPAGLIFLOZIN
     Indication: Diabetes mellitus
     Route: 048
     Dates: start: 20230310, end: 20230407
  2. ATORVASTATIN [Concomitant]
     Active Substance: ATORVASTATIN
     Indication: Blood cholesterol
     Route: 048
     Dates: start: 2010
  3. ASPIRIN [Concomitant]
     Active Substance: ASPIRIN
     Indication: Deafness neurosensory
     Dosage: DOSAGE 1
     Route: 048
     Dates: start: 2021

REACTIONS (17)
  - Gastrointestinal disorder [Not Recovered/Not Resolved]
  - Depression [Recovered/Resolved]
  - Nightmare [Recovered/Resolved]
  - Dysphagia [Recovered/Resolved]
  - Swelling of eyelid [Recovered/Resolved]
  - Peripheral swelling [Recovered/Resolved]
  - Urine output decreased [Not Recovered/Not Resolved]
  - Feeling cold [Recovered/Resolved]
  - Chills [Recovered/Resolved]
  - Hyperhidrosis [Recovered/Resolved]
  - Dysarthria [Recovered/Resolved]
  - Hallucination [Recovered/Resolved]
  - Oral candidiasis [Recovered/Resolved]
  - Blood glucose increased [Not Recovered/Not Resolved]
  - Ketoacidosis [Not Recovered/Not Resolved]
  - Back pain [Recovered/Resolved]
  - Urinary tract infection [Not Recovered/Not Resolved]

NARRATIVE: CASE EVENT DATE: 20230311
